FAERS Safety Report 9349933 (Version 2)
Quarter: 2013Q3

REPORT INFORMATION
  Report Type: Report from Study
  Country: DE (occurrence: DE)
  Receive Date: 20130614
  Receipt Date: 20130731
  Transmission Date: 20140515
  Serious: No
  Sender: FDA-Public Use
  Company Number: PHHY2013DE059867

PATIENT
  Sex: Female
  Weight: 78 kg

DRUGS (7)
  1. AMN107 [Suspect]
     Indication: CHRONIC MYELOID LEUKAEMIA
     Dosage: 400 MG, PER DAY
     Route: 048
     Dates: start: 20100816, end: 20110405
  2. AMN107 [Suspect]
     Dosage: 600 MG, PER DAY
     Route: 048
     Dates: start: 20110405
  3. L-THYROXIN [Concomitant]
     Dosage: UNK UKN, UNK
     Dates: start: 20100816
  4. MIRTAZAPIN [Concomitant]
     Dosage: UNK UKN, UNK
     Dates: start: 20100816
  5. CYMBALTA [Concomitant]
     Dosage: UNK UKN, UNK
     Dates: start: 20100816
  6. DICLOFENAC [Concomitant]
     Dosage: UNK UKN, UNK
     Dates: start: 20100816
  7. TILIDIN [Concomitant]
     Dosage: UNK UKN, UNK
     Dates: start: 20100816

REACTIONS (2)
  - Arthralgia [Recovered/Resolved]
  - Hyperhidrosis [Recovered/Resolved]
